FAERS Safety Report 21801452 (Version 12)
Quarter: 2023Q4

REPORT INFORMATION
  Report Type: Report from Study
  Country: FR (occurrence: FR)
  Receive Date: 20221230
  Receipt Date: 20231229
  Transmission Date: 20240109
  Serious: Yes (Other)
  Sender: FDA-Public Use
  Company Number: FR-SA-SAC20221214001617

PATIENT
  Age: 63 Year
  Sex: Male
  Weight: 84 kg

DRUGS (48)
  1. DEXAMETHASONE [Suspect]
     Active Substance: DEXAMETHASONE
     Indication: Plasma cell myeloma refractory
     Dosage: 10 MG, QW
     Route: 065
     Dates: start: 20221013, end: 20221103
  2. DEXAMETHASONE [Suspect]
     Active Substance: DEXAMETHASONE
     Dosage: 10 MG, QW
     Route: 065
     Dates: start: 20221219, end: 20230109
  3. DEXAMETHASONE [Suspect]
     Active Substance: DEXAMETHASONE
     Dosage: 10 MG, QW
     Route: 065
     Dates: start: 20230223, end: 20230316
  4. DEXAMETHASONE [Suspect]
     Active Substance: DEXAMETHASONE
     Dosage: 10 MG, QW
     Route: 065
     Dates: start: 20230123, end: 20230213
  5. DEXAMETHASONE [Suspect]
     Active Substance: DEXAMETHASONE
     Dosage: 40 MG, QW
     Route: 065
     Dates: start: 20220915, end: 20220926
  6. DEXAMETHASONE [Suspect]
     Active Substance: DEXAMETHASONE
     Dosage: 10 MG, QW
     Route: 065
     Dates: start: 20221110, end: 20221201
  7. DEXAMETHASONE [Suspect]
     Active Substance: DEXAMETHASONE
     Dosage: 10 MG, QW
     Route: 065
     Dates: start: 20230323, end: 20230330
  8. POMALIDOMIDE [Suspect]
     Active Substance: POMALIDOMIDE
     Indication: Plasma cell myeloma refractory
     Route: 065
     Dates: start: 20220915, end: 20220925
  9. POMALIDOMIDE [Suspect]
     Active Substance: POMALIDOMIDE
     Route: 065
     Dates: start: 20221013, end: 20221102
  10. POMALIDOMIDE [Suspect]
     Active Substance: POMALIDOMIDE
     Route: 065
     Dates: start: 20221224, end: 20230113
  11. POMALIDOMIDE [Suspect]
     Active Substance: POMALIDOMIDE
     Dosage: 3 MG, QD
     Route: 065
     Dates: start: 20230123, end: 20230212
  12. POMALIDOMIDE [Suspect]
     Active Substance: POMALIDOMIDE
     Route: 065
     Dates: start: 20221110, end: 20221130
  13. POMALIDOMIDE [Suspect]
     Active Substance: POMALIDOMIDE
     Dosage: 2 MG, QD
     Route: 065
     Dates: start: 20230323, end: 20230412
  14. POMALIDOMIDE [Suspect]
     Active Substance: POMALIDOMIDE
     Dosage: 2 MG, QD
     Route: 065
     Dates: start: 20230712, end: 20230717
  15. POMALIDOMIDE [Suspect]
     Active Substance: POMALIDOMIDE
     Dosage: 2 MG, QD
     Route: 065
     Dates: start: 20230615, end: 20230705
  16. POMALIDOMIDE [Suspect]
     Active Substance: POMALIDOMIDE
     Dosage: 2 MG, QD
     Route: 065
     Dates: start: 20230519, end: 20230608
  17. POMALIDOMIDE [Suspect]
     Active Substance: POMALIDOMIDE
     Dosage: 2 MG, QD
     Route: 065
     Dates: start: 20231005, end: 20231025
  18. POMALIDOMIDE [Suspect]
     Active Substance: POMALIDOMIDE
     Dosage: 2 MG, QD
     Route: 065
     Dates: start: 20230810, end: 20230830
  19. POMALIDOMIDE [Suspect]
     Active Substance: POMALIDOMIDE
     Dosage: 2 MG, QD
     Route: 065
     Dates: start: 20230419, end: 20230509
  20. POMALIDOMIDE [Suspect]
     Active Substance: POMALIDOMIDE
     Dosage: 2 MG, QD
     Route: 065
     Dates: start: 20230223, end: 20230315
  21. POMALIDOMIDE [Suspect]
     Active Substance: POMALIDOMIDE
     Dosage: 2 MG, QD
     Route: 065
     Dates: start: 20231106, end: 20231126
  22. ISATUXIMAB [Suspect]
     Active Substance: ISATUXIMAB
     Indication: Plasma cell myeloma refractory
     Dosage: 840 MG, QW
     Route: 065
     Dates: start: 20220915, end: 20220922
  23. ISATUXIMAB [Suspect]
     Active Substance: ISATUXIMAB
     Dosage: 840 MG, BIW
     Route: 065
     Dates: start: 20221013, end: 20221027
  24. ISATUXIMAB [Suspect]
     Active Substance: ISATUXIMAB
     Dosage: 840 MG, BIW
     Route: 065
     Dates: start: 20221219, end: 20230103
  25. ISATUXIMAB [Suspect]
     Active Substance: ISATUXIMAB
     Dosage: 840 MG, BIW
     Route: 065
     Dates: start: 20230123, end: 20230209
  26. ISATUXIMAB [Suspect]
     Active Substance: ISATUXIMAB
     Dosage: 840 MG, BIW
     Route: 065
     Dates: start: 20221110, end: 20221124
  27. ISATUXIMAB [Suspect]
     Active Substance: ISATUXIMAB
     Dosage: 840 MG, BIW
     Route: 065
     Dates: start: 20230223, end: 20230309
  28. ISATUXIMAB [Suspect]
     Active Substance: ISATUXIMAB
     Dosage: 820 MG, QM
     Route: 065
     Dates: start: 20230810, end: 20230810
  29. ISATUXIMAB [Suspect]
     Active Substance: ISATUXIMAB
     Dosage: 840 MG, BIW
     Route: 065
     Dates: start: 20230419, end: 20230504
  30. ISATUXIMAB [Suspect]
     Active Substance: ISATUXIMAB
     Dosage: 840 MG, QM
     Route: 065
     Dates: start: 20231106, end: 20231106
  31. ISATUXIMAB [Suspect]
     Active Substance: ISATUXIMAB
     Dosage: 840 MG, QM
     Route: 065
     Dates: start: 20230519, end: 20230519
  32. ISATUXIMAB [Suspect]
     Active Substance: ISATUXIMAB
     Dosage: 820 MG, QM
     Route: 065
     Dates: start: 20231005, end: 20231005
  33. ISATUXIMAB [Suspect]
     Active Substance: ISATUXIMAB
     Dosage: 820 MG, QM
     Route: 065
     Dates: start: 20230712, end: 20230712
  34. ISATUXIMAB [Suspect]
     Active Substance: ISATUXIMAB
     Dosage: 840 MG, BIW
     Route: 065
     Dates: start: 20230323, end: 20230406
  35. ISATUXIMAB [Suspect]
     Active Substance: ISATUXIMAB
     Dosage: 820 MG, QM
     Route: 065
     Dates: start: 20230615, end: 20230615
  36. ATOVAQUONE [Concomitant]
     Active Substance: ATOVAQUONE
     Indication: Infection prophylaxis
     Dates: start: 20220915
  37. TRAMADOL [Concomitant]
     Active Substance: TRAMADOL\TRAMADOL HYDROCHLORIDE
     Indication: Bone pain
     Dates: start: 20220915
  38. PRIMPERAN [Concomitant]
     Active Substance: METOCLOPRAMIDE HYDROCHLORIDE
     Indication: Nausea
     Dates: start: 20220915
  39. VALACYCLOVIR HYDROCHLORIDE [Concomitant]
     Active Substance: VALACYCLOVIR HYDROCHLORIDE
     Indication: Infection prophylaxis
     Dates: start: 20220915
  40. ESOMEPRAZOLE MAGNESIUM [Concomitant]
     Active Substance: ESOMEPRAZOLE MAGNESIUM
     Indication: Abdominal pain upper
     Dates: start: 20220915
  41. KARDEGIC [Concomitant]
     Active Substance: ASPIRIN DL-LYSINE
     Indication: Thrombosis prophylaxis
     Dates: start: 20220915
  42. POLARAMINE [Concomitant]
     Active Substance: DEXCHLORPHENIRAMINE MALEATE
     Indication: Prophylaxis
     Dates: start: 20220915
  43. ACETAMINOPHEN [Concomitant]
     Active Substance: ACETAMINOPHEN
     Indication: Prophylaxis
     Dates: start: 20220915
  44. RANITIDINE [Concomitant]
     Active Substance: RANITIDINE
     Indication: Prophylaxis
     Dates: start: 20220915
  45. INFLUENZA VIRUS VACCINE [Concomitant]
     Active Substance: INFLUENZA VIRUS VACCINE
     Indication: Antiviral prophylaxis
     Dates: start: 20221114
  46. LERCANIDIPINE [Concomitant]
     Active Substance: LERCANIDIPINE
     Indication: Product used for unknown indication
     Dates: start: 20230412, end: 20230503
  47. ZOMETA [Concomitant]
     Active Substance: ZOLEDRONIC ACID
     Indication: Prophylaxis
     Dates: start: 20230223
  48. FUROSEMIDE [Concomitant]
     Active Substance: FUROSEMIDE
     Indication: Product used for unknown indication
     Dates: start: 20230616

REACTIONS (34)
  - Neutropenia [Recovered/Resolved]
  - Neutropenia [Recovered/Resolved]
  - Neutropenia [Recovered/Resolved]
  - Neutropenia [Recovered/Resolved]
  - Neutropenia [Recovered/Resolved]
  - Neutropenia [Recovered/Resolved]
  - Neutropenia [Recovered/Resolved]
  - Neutropenia [Recovered/Resolved]
  - Pneumonia [Recovered/Resolved]
  - Ear pain [Recovered/Resolved]
  - Inflammation [Recovered/Resolved]
  - Hypotension [Recovered/Resolved]
  - Sciatica [Recovered/Resolved]
  - Keratitis [Recovered/Resolved]
  - Vision blurred [Recovered/Resolved]
  - Abdominal pain [Recovered/Resolved]
  - Dry eye [Recovered/Resolved]
  - Anaemia [Recovered/Resolved]
  - Cough [Recovered/Resolved]
  - Dyspnoea [Recovered/Resolved]
  - Back pain [Not Recovered/Not Resolved]
  - Asthenia [Not Recovered/Not Resolved]
  - Constipation [Recovered/Resolved]
  - Hyperhidrosis [Recovered/Resolved]
  - Weight increased [Recovering/Resolving]
  - Vomiting [Recovered/Resolved]
  - Rhinitis [Recovered/Resolved]
  - Sinusitis [Recovered/Resolved]
  - Rash [Recovered/Resolved]
  - Pharyngitis [Recovered/Resolved]
  - Gastroenteritis [Recovered/Resolved]
  - Bronchitis [Recovered/Resolved]
  - Bronchitis [Recovered/Resolved]
  - Bronchitis [Recovered/Resolved]

NARRATIVE: CASE EVENT DATE: 20220915
